FAERS Safety Report 15786657 (Version 1)
Quarter: 2019Q1

REPORT INFORMATION
  Report Type: Spontaneous
  Country: US (occurrence: US)
  Receive Date: 20190103
  Receipt Date: 20190103
  Transmission Date: 20190417
  Serious: No
  Sender: FDA-Public Use
  Company Number: US-PERRIGO-18US007638

PATIENT
  Age: 3 Year
  Sex: Female
  Weight: 15.87 kg

DRUGS (3)
  1. TRIAMCINOLONE ACETONIDE. [Suspect]
     Active Substance: TRIAMCINOLONE ACETONIDE
     Indication: ECZEMA
     Dosage: 1 LIGHT LAYER, PRN
     Route: 061
     Dates: start: 2016
  2. HYDROCORTISONE. [Suspect]
     Active Substance: HYDROCORTISONE
     Indication: ECZEMA
     Dosage: 1 APPLICATION, PRN
     Route: 061
  3. CETAPHIL                           /02971301/ [Concomitant]
     Indication: ECZEMA
     Dosage: UNK
     Route: 061

REACTIONS (2)
  - Application site discolouration [Unknown]
  - Drug ineffective [Unknown]

NARRATIVE: CASE EVENT DATE: 201804
